FAERS Safety Report 8934423 (Version 1)
Quarter: 2012Q4

REPORT INFORMATION
  Report Type: 
  Country: US (occurrence: US)
  Receive Date: 20121129
  Receipt Date: 20121129
  Transmission Date: 20130627
  Serious: No
  Sender: FDA-Public Use
  Company Number: US-PFIZER INC-2012299518

PATIENT
  Age: 55 Year
  Sex: Female
  Weight: 77.1 kg

DRUGS (2)
  1. GABAPENTIN [Suspect]
     Indication: FIBROMYALGIA
     Dosage: 600 mg, UNK
     Dates: start: 2011, end: 2012
  2. VICODIN [Concomitant]
     Dosage: UNK

REACTIONS (4)
  - Off label use [Unknown]
  - Drug ineffective for unapproved indication [Unknown]
  - Nervousness [Unknown]
  - Body height decreased [Unknown]
